FAERS Safety Report 23413949 (Version 1)
Quarter: 2024Q1

REPORT INFORMATION
  Report Type: Report from Study
  Country: US (occurrence: US)
  Receive Date: 20240117
  Receipt Date: 20240117
  Transmission Date: 20240410
  Serious: Yes (Other)
  Sender: FDA-Public Use
  Company Number: US-ABBVIE-5587763

PATIENT
  Sex: Female

DRUGS (1)
  1. SKYRIZI [Suspect]
     Active Substance: RISANKIZUMAB-RZAA
     Indication: Psoriasis
     Route: 058
     Dates: start: 20230422

REACTIONS (8)
  - Nerve block [Unknown]
  - Skin disorder [Unknown]
  - Ear pain [Unknown]
  - Temporomandibular joint syndrome [Unknown]
  - Arthralgia [Not Recovered/Not Resolved]
  - Neck pain [Unknown]
  - Alopecia [Unknown]
  - Headache [Unknown]

NARRATIVE: CASE EVENT DATE: 20230101
